FAERS Safety Report 20757670 (Version 1)
Quarter: 2022Q2

REPORT INFORMATION
  Report Type: Spontaneous
  Country: US (occurrence: None)
  Receive Date: 20220427
  Receipt Date: 20220427
  Transmission Date: 20220721
  Serious: No
  Sender: FDA-Public Use
  Company Number: None

PATIENT
  Age: 27 Year
  Sex: Female

DRUGS (1)
  1. SOFOSBUVIR\VELPATASVIR [Suspect]
     Active Substance: SOFOSBUVIR\VELPATASVIR
     Dosage: OTHER QUANTITY : 100/400MG;?FREQUENCY : DAILY;?
     Route: 048

REACTIONS (3)
  - Chronic hepatitis C [None]
  - Maternal exposure during pregnancy [None]
  - Pregnancy [None]

NARRATIVE: CASE EVENT DATE: 20220427
